FAERS Safety Report 23775154 (Version 1)
Quarter: 2024Q2

REPORT INFORMATION
  Report Type: Spontaneous
  Country: US (occurrence: None)
  Receive Date: 20240423
  Receipt Date: 20240423
  Transmission Date: 20240716
  Serious: Yes (Hospitalization)
  Sender: FDA-Public Use
  Company Number: None

PATIENT
  Age: 78 Year
  Sex: Male
  Weight: 86 kg

DRUGS (2)
  1. WARFARIN SODIUM [Suspect]
     Active Substance: WARFARIN SODIUM
     Indication: Cerebrovascular accident
     Dosage: 3  TAB EVERY DAY PO
     Route: 048
     Dates: start: 20120101, end: 20230621
  2. WARFARIN SODIUM [Suspect]
     Active Substance: WARFARIN SODIUM
     Indication: Heart valve stenosis

REACTIONS (8)
  - Gastrointestinal haemorrhage [None]
  - Pneumonia aspiration [None]
  - Hypophagia [None]
  - International normalised ratio increased [None]
  - Haemoglobin decreased [None]
  - Hepatitis cholestatic [None]
  - Dementia [None]
  - Chronic obstructive pulmonary disease [None]

NARRATIVE: CASE EVENT DATE: 20230612
